FAERS Safety Report 20241165 (Version 1)
Quarter: 2021Q4

REPORT INFORMATION
  Report Type: Spontaneous
  Country: US (occurrence: US)
  Receive Date: 20211228
  Receipt Date: 20211228
  Transmission Date: 20220303
  Serious: No
  Sender: FDA-Public Use
  Company Number: US-COOPERSURGICAL, INC.-US-2020CPS003300

PATIENT
  Age: 18 Year
  Sex: Female

DRUGS (3)
  1. PARAGARD T 380A [Suspect]
     Active Substance: COPPER
     Indication: Product used for unknown indication
     Dosage: UNK
     Route: 015
     Dates: start: 20201217, end: 20201217
  2. PARAGARD T 380A [Suspect]
     Active Substance: COPPER
     Dosage: UNK
     Route: 015
     Dates: start: 202012
  3. IBUPROFEN [Concomitant]
     Active Substance: IBUPROFEN
     Indication: Product used for unknown indication
     Dosage: 800 MG
     Route: 048

REACTIONS (2)
  - Complication of device insertion [Recovered/Resolved]
  - Off label use [Recovered/Resolved]

NARRATIVE: CASE EVENT DATE: 20201217
